FAERS Safety Report 9151119 (Version 3)
Quarter: 2013Q3

REPORT INFORMATION
  Report Type: Spontaneous
  Country: US (occurrence: US)
  Receive Date: 20130308
  Receipt Date: 20130910
  Transmission Date: 20140515
  Serious: No
  Sender: FDA-Public Use
  Company Number: US-ASTELLAS-2012US012026

PATIENT
  Sex: Male

DRUGS (20)
  1. XTANDI [Suspect]
     Indication: PROSTATE CANCER
     Dosage: 160 MG, UID/QD
     Route: 048
     Dates: start: 2012, end: 201305
  2. XTANDI [Suspect]
     Dosage: 160 MG, UID/QD
     Route: 048
     Dates: start: 20130601, end: 20130601
  3. XTANDI [Suspect]
     Dosage: 120 MG, UID/QD
     Route: 048
     Dates: start: 201302
  4. CORTICOSTEROIDS [Concomitant]
     Indication: BACK PAIN
     Dosage: UNK
     Route: 042
  5. LIPITOR [Concomitant]
     Indication: PRODUCT USED FOR UNKNOWN INDICATION
     Dosage: 20 MG, UID/QD
     Route: 048
  6. CHOLECALCIFEROL [Concomitant]
     Indication: PRODUCT USED FOR UNKNOWN INDICATION
     Dosage: 5000 MG, UNKNOWN/D
     Route: 048
  7. AVODART [Concomitant]
     Indication: PRODUCT USED FOR UNKNOWN INDICATION
     Dosage: 0.5 MG, UID/QD
     Route: 048
  8. CLIMARA [Concomitant]
     Indication: PRODUCT USED FOR UNKNOWN INDICATION
     Dosage: 8 PATCHES, TWICE A WEEK
     Route: 061
  9. GLUCOSAMINE SULFATE [Concomitant]
     Indication: PRODUCT USED FOR UNKNOWN INDICATION
     Dosage: 2000 MG, UID/QD
     Route: 048
  10. VICODIN [Concomitant]
     Indication: PRODUCT USED FOR UNKNOWN INDICATION
     Dosage: 500 MG, PRN
     Route: 048
  11. IBUPROFEN [Concomitant]
     Indication: PRODUCT USED FOR UNKNOWN INDICATION
     Dosage: 400 MG, BID
     Route: 048
  12. SYNTHROID [Concomitant]
     Indication: PRODUCT USED FOR UNKNOWN INDICATION
     Dosage: 100 UG, UID/QD
     Route: 048
  13. MAG-OX [Concomitant]
     Indication: PRODUCT USED FOR UNKNOWN INDICATION
     Dosage: 400 MG, UID/QD
     Route: 048
  14. LOPRESSOR [Concomitant]
     Indication: PRODUCT USED FOR UNKNOWN INDICATION
     Dosage: 25 MG, BID
     Route: 048
  15. B COMPLEX                          /06817001/ [Concomitant]
     Indication: PRODUCT USED FOR UNKNOWN INDICATION
     Dosage: 1 UNK, UID/QD
     Route: 048
  16. LOVAZA [Concomitant]
     Indication: PRODUCT USED FOR UNKNOWN INDICATION
     Dosage: 1 G, UID/QD
     Route: 048
  17. TRIAMTERENE AND HYDROCHLOROTHIAZIDE [Concomitant]
     Indication: PRODUCT USED FOR UNKNOWN INDICATION
     Dosage: 25 MG, UID/QD
     Route: 048
  18. COUMADIN                           /00014802/ [Concomitant]
     Indication: PRODUCT USED FOR UNKNOWN INDICATION
     Dosage: 7.5 MG, UID/QD X 6 DAYS
     Route: 048
  19. COUMADIN                           /00014802/ [Concomitant]
     Dosage: 5 MG, WEEKLY
     Route: 048
  20. RADIUM 223 DICHLORIDE [Concomitant]
     Indication: PROSTATE CANCER
     Dosage: UNK
     Route: 065
     Dates: start: 201303, end: 201305

REACTIONS (9)
  - Drug ineffective [Unknown]
  - Adverse event [Unknown]
  - Nausea [Recovered/Resolved]
  - Back pain [Recovered/Resolved]
  - Arthralgia [Unknown]
  - Vertigo [Recovered/Resolved]
  - Dizziness [Recovered/Resolved]
  - Prostatic specific antigen increased [Unknown]
  - Asthenia [Unknown]
